FAERS Safety Report 5510359-X (Version None)
Quarter: 2007Q4

REPORT INFORMATION
  Report Type: 
  Country: None (occurrence: None)
  Receive Date: 20071108
  Receipt Date: 20071030
  Transmission Date: 20080405
  Serious: Yes (Hospitalization, Other)
  Sender: FDA-Public Use
  Company Number: US-PFIZER INC-2007052662

PATIENT
  Sex: Female

DRUGS (6)
  1. NEURONTIN [Interacting]
     Indication: MENTAL DISORDER
  2. LIPITOR [Suspect]
  3. LITHIUM CARBONATE [Suspect]
  4. ZYPREXA [Interacting]
     Indication: MENTAL DISORDER
  5. DEPAKOTE [Interacting]
     Indication: MENTAL DISORDER
     Dosage: DAILY DOSE:1000MG
  6. ALL OTHER THERAPEUTIC PRODUCTS [Suspect]

REACTIONS (10)
  - AMNESIA [None]
  - ASTHENIA [None]
  - DRUG INTERACTION [None]
  - LABORATORY TEST ABNORMAL [None]
  - MENTAL DISORDER [None]
  - MENTAL STATUS CHANGES [None]
  - MOOD ALTERED [None]
  - PHYSICAL ABUSE [None]
  - TRAUMATIC BRAIN INJURY [None]
  - UNEVALUABLE EVENT [None]
